FAERS Safety Report 9729770 (Version 1)
Quarter: 2013Q4

REPORT INFORMATION
  Report Type: Spontaneous
  Country: US (occurrence: US)
  Receive Date: 20131204
  Receipt Date: 20131204
  Transmission Date: 20140711
  Serious: No
  Sender: FDA-Public Use
  Company Number: US-GILEAD-2009-0022450

PATIENT
  Sex: Male
  Weight: 62.14 kg

DRUGS (2)
  1. LETAIRIS [Suspect]
     Indication: PULMONARY ARTERIAL HYPERTENSION
     Route: 048
     Dates: start: 20090407
  2. LISINOPRIL [Concomitant]

REACTIONS (3)
  - Nausea [Unknown]
  - Vomiting [Unknown]
  - Fluid retention [Unknown]
